FAERS Safety Report 5089465-2 (Version None)
Quarter: 2006Q3

REPORT INFORMATION
  Report Type: 
  Country: None (occurrence: None)
  Receive Date: 20060727
  Receipt Date: 20060504
  Transmission Date: 20061208
  Serious: Yes (Other)
  Sender: FDA-Public Use
  Company Number: 2006060997

PATIENT
  Age: 44 Year
  Sex: Female
  Weight: 90.7194 kg

DRUGS (2)
  1. LYRICA [Suspect]
     Indication: BACK PAIN
     Dosage: 50 MG (50 MG, 1 IN 1 D), UNKNOWN
     Dates: start: 20060502
  2. ZOLOFT [Suspect]
     Indication: ANXIETY
     Dosage: 100 MG (100 MG, 1 IN 1 D), UNKNOWN
     Dates: start: 20060405

REACTIONS (1)
  - PRURITUS [None]
